FAERS Safety Report 17190557 (Version 1)
Quarter: 2019Q4

REPORT INFORMATION
  Report Type: Spontaneous
  Country: AU (occurrence: AU)
  Receive Date: 20191223
  Receipt Date: 20191223
  Transmission Date: 20200122
  Serious: Yes (Death, Hospitalization, Other)
  Sender: FDA-Public Use
  Company Number: AU-ALKEM LABORATORIES LIMITED-AU-ALKEM-2019-06216

PATIENT
  Age: 66 Year
  Sex: Female

DRUGS (4)
  1. ACICLOVIR [Suspect]
     Active Substance: ACYCLOVIR
     Indication: VARICELLA ZOSTER VIRUS INFECTION
     Dosage: 10 MICROGRAM/KILOGRAM, BID
     Route: 042
  2. PREDNISOLONE. [Suspect]
     Active Substance: PREDNISOLONE
     Indication: IMMUNOSUPPRESSANT DRUG THERAPY
     Dosage: 5 MILLIGRAM, OD
     Route: 065
  3. MYCOPHENOLATE MOFETIL. [Suspect]
     Active Substance: MYCOPHENOLATE MOFETIL
     Indication: IMMUNOSUPPRESSANT DRUG THERAPY
     Dosage: 750 MILLIGRAM, BID
     Route: 065
  4. EVEROLIMUS. [Suspect]
     Active Substance: EVEROLIMUS
     Indication: IMMUNOSUPPRESSANT DRUG THERAPY
     Dosage: 1.25 MILLIGRAM, BID
     Route: 065

REACTIONS (4)
  - Pancreatitis viral [Unknown]
  - Varicella zoster virus infection [Fatal]
  - Drug ineffective [Unknown]
  - Hepatitis viral [Unknown]
